FAERS Safety Report 4345762-7 (Version None)
Quarter: 2004Q2

REPORT INFORMATION
  Report Type: 
  Country: None (occurrence: None)
  Receive Date: 20040421
  Receipt Date: 20040405
  Transmission Date: 20050107
  Serious: Yes (Hospitalization)
  Sender: FDA-Public Use
  Company Number: 6008284

PATIENT
  Age: 69 Year
  Sex: Female

DRUGS (7)
  1. LEVOTHYROXINE SODIUM [Suspect]
     Dosage: 25 MCG, ORAL
     Route: 048
     Dates: start: 19950615
  2. LEVOTHYROX 100 (TABLETS) (LEVOTHYROXINE SODIUM [Suspect]
     Dosage: 100 MCG, ORAL
     Route: 048
     Dates: start: 19950615
  3. DIGOXINE (TABLETS) (DIGOXINE) [Suspect]
     Dosage: 0.25 MG, ORAL
     Route: 048
  4. LASILIX (CAPSULES) (FUROSEMIDE) [Suspect]
     Dosage: 60 MG, ORAL
     Route: 048
     Dates: end: 20040228
  5. PREVISCAN (TABLETS) (FLUINDIONE) [Suspect]
     Dosage: ORAL
     Route: 048
     Dates: end: 20040228
  6. KREDEX (TABLETS) (CARVEDILOL) [Suspect]
     Dosage: 6,25 MG, ORAL
     Route: 048
  7. RAMIPRIL [Suspect]
     Dosage: 10 MG (5 MG, 2 IN 1 D), ORAL
     Route: 048
     Dates: end: 20040228

REACTIONS (10)
  - ACCIDENTAL OVERDOSE [None]
  - ANOREXIA [None]
  - BLOOD THYROID STIMULATING HORMONE DECREASED [None]
  - CARDIOACTIVE DRUG LEVEL ABOVE THERAPEUTIC [None]
  - CONSTIPATION [None]
  - DEHYDRATION [None]
  - DRUG LEVEL DECREASED [None]
  - NAUSEA [None]
  - RENAL FAILURE [None]
  - VOMITING [None]
